FAERS Safety Report 6741176 (Version 6)
Quarter: 2015Q4

REPORT INFORMATION
  Report Type: Report from Study
  Country: US (occurrence: US)
  Receive Date: 20080828
  Receipt Date: 20151020
  Transmission Date: 20160305
  Serious: Yes (Hospitalization)
  Sender: FDA-Public Use
  Company Number: US-JNJFOC-20080804913

PATIENT
  Age: 15 Year
  Sex: Female
  Weight: 36.7 kg

DRUGS (9)
  1. INFLIXIMAB [Suspect]
     Active Substance: INFLIXIMAB
     Indication: CROHN^S DISEASE
     Route: 042
     Dates: start: 200807
  2. MOTRIN [Concomitant]
     Active Substance: IBUPROFEN
     Indication: PAIN
  3. MESALAMINE. [Concomitant]
     Active Substance: MESALAMINE
  4. MULTIVITAMIN [Concomitant]
     Active Substance: VITAMINS
  5. GENOTROPIN [Concomitant]
     Active Substance: SOMATROPIN
  6. ACETAMINOPHEN. [Concomitant]
     Active Substance: ACETAMINOPHEN
     Dates: start: 20080729
  7. ANTIHISTAMINES [Concomitant]
     Active Substance: ANTIHISTAMINES NOS
     Dates: start: 20080729
  8. PENTASA [Concomitant]
     Active Substance: MESALAMINE
  9. INFLIXIMAB [Suspect]
     Active Substance: INFLIXIMAB
     Indication: CROHN^S DISEASE
     Route: 042
     Dates: start: 20080729

REACTIONS (7)
  - Blood albumin decreased [Recovered/Resolved]
  - Wound infection bacterial [Recovered/Resolved with Sequelae]
  - Klebsiella infection [Recovered/Resolved with Sequelae]
  - Enterococcal infection [Recovered/Resolved with Sequelae]
  - Enterocutaneous fistula [Recovered/Resolved]
  - Pelvic abscess [Recovered/Resolved]
  - Anaemia [Recovered/Resolved]

NARRATIVE: CASE EVENT DATE: 20080818
